FAERS Safety Report 8763816 (Version 2)
Quarter: 2012Q4

REPORT INFORMATION
  Report Type: Report from Study
  Country: JP (occurrence: JP)
  Receive Date: 20120831
  Receipt Date: 20121003
  Transmission Date: 20130627
  Serious: Yes (Other)
  Sender: FDA-Public Use
  Company Number: JP-009507513-1208JPN009604

PATIENT
  Age: 53 Year
  Sex: Male
  Weight: 73 kg

DRUGS (10)
  1. PEGINTRON [Suspect]
     Indication: HEPATITIS C
     Dosage: 1.4 Microgram per kilogram, qw
     Route: 058
     Dates: start: 20120605, end: 20120626
  2. PEGINTRON [Suspect]
     Dosage: 0.7 Microgram per kilogram, qw
     Route: 058
     Dates: start: 20120703, end: 20120703
  3. PEGINTRON [Suspect]
     Dosage: UNK UNK, qw
     Route: 058
     Dates: start: 20120710
  4. REBETOL [Suspect]
     Indication: HEPATITIS C
     Dosage: 800 mg, qd
     Route: 048
  5. REBETOL [Suspect]
     Dosage: 600 mg, qd
     Route: 048
     Dates: start: 20120724, end: 20120813
  6. REBETOL [Suspect]
     Dosage: 400 UNK, UNK
     Dates: start: 20120814
  7. TELAVIC [Suspect]
     Indication: HEPATITIS C
     Dosage: 2500 mg, qd
     Route: 048
     Dates: start: 20120605, end: 20120827
  8. URSO [Concomitant]
     Indication: HEPATITIS C
     Dosage: formulation:POR
     Route: 048
  9. VOLTAREN [Concomitant]
     Dosage: 50 mg, qd, as needed, suppository
     Route: 054
     Dates: end: 20120612
  10. ZYLORIC [Concomitant]
     Dosage: 300 mg, UNK
     Route: 048
     Dates: start: 20120608

REACTIONS (1)
  - Renal impairment [Not Recovered/Not Resolved]
